FAERS Safety Report 7935998-8 (Version None)
Quarter: 2011Q4

REPORT INFORMATION
  Report Type: 
  Country: None (occurrence: None)
  Receive Date: 20111121
  Receipt Date: 20111114
  Transmission Date: 20120403
  Serious: Yes (Other)
  Sender: FDA-Public Use
  Company Number: 2011-01313

PATIENT
  Age: 55 Year
  Sex: Female
  Weight: 113.3993 kg

DRUGS (2)
  1. ZICAM EXTREME CONGESTION SPRAY [Suspect]
     Indication: NASAL CONGESTION
     Dosage: 3 SQUIRTS IN EACH NOSTRIL
     Dates: start: 20111001, end: 20111001
  2. ATENOLOL [Concomitant]

REACTIONS (2)
  - DEAFNESS [None]
  - TINNITUS [None]
